FAERS Safety Report 5519369-X (Version None)
Quarter: 2007Q4

REPORT INFORMATION
  Report Type: 
  Country: None (occurrence: None)
  Receive Date: 20071116
  Receipt Date: 20070718
  Transmission Date: 20080405
  Serious: No
  Sender: FDA-Public Use
  Company Number: A0664864A

PATIENT
  Age: 52 Year
  Sex: Female

DRUGS (6)
  1. COREG CR [Suspect]
     Dosage: 12.5MG TWICE PER DAY
     Route: 048
  2. FOLIC ACID [Concomitant]
  3. LEVOXYL [Concomitant]
  4. SPIRONOLACTONE [Concomitant]
  5. METAXOLONE [Concomitant]
  6. FUROSEMIDE [Concomitant]

REACTIONS (2)
  - BLOOD POTASSIUM INCREASED [None]
  - HEART RATE INCREASED [None]
